FAERS Safety Report 8251512-4 (Version None)
Quarter: 2012Q2

REPORT INFORMATION
  Report Type: 
  Country: None (occurrence: None)
  Receive Date: 20120402
  Receipt Date: 20120328
  Transmission Date: 20120825
  Serious: Yes (Hospitalization)
  Sender: FDA-Public Use
  Company Number: US-GILEAD-2012-0052460

PATIENT
  Sex: Male

DRUGS (1)
  1. LETAIRIS [Suspect]
     Indication: PRODUCT USED FOR UNKNOWN INDICATION
     Dosage: 5 MG, UNK
     Route: 048
     Dates: start: 20120315, end: 20120317

REACTIONS (6)
  - CHEST PAIN [None]
  - PAIN [None]
  - SKIN DISCOLOURATION [None]
  - OCULAR ICTERUS [None]
  - TREMOR [None]
  - DISORIENTATION [None]
